FAERS Safety Report 9516293 (Version 1)
Quarter: 2013Q3

REPORT INFORMATION
  Report Type: Spontaneous
  Country: IN (occurrence: None)
  Receive Date: 20130909
  Receipt Date: 20130909
  Transmission Date: 20140515
  Serious: Yes (Disabling, Other)
  Sender: FDA-Public Use
  Company Number: AUR-APL-2013-07208

PATIENT
  Age: 56 Year
  Sex: Male

DRUGS (1)
  1. VALPROATE SEMISODIUM [Suspect]
     Indication: GRAND MAL CONVULSION
     Dosage: 800 MG (400 MG, 2 IN 1 D)

REACTIONS (16)
  - Balance disorder [None]
  - Somnolence [None]
  - Cognitive disorder [None]
  - Gait disturbance [None]
  - Dysstasia [None]
  - Dysarthria [None]
  - Gaze palsy [None]
  - Parkinsonism [None]
  - Gait disturbance [None]
  - Hyperammonaemia [None]
  - Toxicity to various agents [None]
  - Convulsion [None]
  - Dysphonia [None]
  - Cerebral atrophy [None]
  - Gliosis [None]
  - Encephalopathy [None]
